FAERS Safety Report 12072327 (Version 1)
Quarter: 2016Q1

REPORT INFORMATION
  Report Type: Report from Study
  Country: GB (occurrence: GB)
  Receive Date: 20160212
  Receipt Date: 20160212
  Transmission Date: 20160526
  Serious: Yes (Other)
  Sender: FDA-Public Use
  Company Number: GB-ROCHE-1582127

PATIENT
  Age: 72 Year
  Sex: Female

DRUGS (2)
  1. RANIBIZUMAB [Suspect]
     Active Substance: RANIBIZUMAB
     Dosage: BOTH EYES
     Route: 050
     Dates: start: 20140828
  2. RANIBIZUMAB [Suspect]
     Active Substance: RANIBIZUMAB
     Indication: NEOVASCULAR AGE-RELATED MACULAR DEGENERATION
     Dosage: BOTH EYES
     Route: 050

REACTIONS (5)
  - Angle closure glaucoma [Unknown]
  - Lacrimation increased [Unknown]
  - Eye pain [Unknown]
  - Blepharitis [Unknown]
  - Ocular hypertension [Unknown]

NARRATIVE: CASE EVENT DATE: 20140903
